FAERS Safety Report 10233541 (Version 5)
Quarter: 2014Q4

REPORT INFORMATION
  Report Type: Report from Study
  Country: US (occurrence: US)
  Receive Date: 20140612
  Receipt Date: 20141024
  Transmission Date: 20150528
  Serious: Yes (Death, Hospitalization, Other)
  Sender: FDA-Public Use
  Company Number: US-ALEXION PHARMACEUTICALS INC.-A201402278

PATIENT

DRUGS (1)
  1. SOLIRIS [Suspect]
     Active Substance: ECULIZUMAB
     Indication: HAEMOLYTIC URAEMIC SYNDROME
     Dosage: 600 MG, Q2W
     Route: 042
     Dates: start: 20120523

REACTIONS (5)
  - Unevaluable event [Unknown]
  - Brain herniation [Fatal]
  - Brain death [Fatal]
  - Unevaluable event [Unknown]
  - Catheter site infection [Unknown]

NARRATIVE: CASE EVENT DATE: 20140619
